FAERS Safety Report 12889106 (Version 2)
Quarter: 2016Q4

REPORT INFORMATION
  Report Type: Spontaneous
  Country: US (occurrence: US)
  Receive Date: 20161027
  Receipt Date: 20161205
  Transmission Date: 20170207
  Serious: Yes (Hospitalization, Other)
  Sender: FDA-Public Use
  Company Number: US-PFIZER INC-2016487671

PATIENT
  Age: 52 Year
  Sex: Female

DRUGS (31)
  1. METHOTREXATE SODIUM. [Suspect]
     Active Substance: METHOTREXATE SODIUM
     Indication: ACUTE LYMPHOCYTIC LEUKAEMIA
  2. CYTARABINE. [Suspect]
     Active Substance: CYTARABINE
     Indication: PHILADELPHIA CHROMOSOME POSITIVE
     Dosage: UNK
  3. CYCLOPHOSPHAMIDE. [Suspect]
     Active Substance: CYCLOPHOSPHAMIDE
     Indication: PHILADELPHIA CHROMOSOME POSITIVE
     Dosage: UNK
  4. CYCLOPHOSPHAMIDE. [Suspect]
     Active Substance: CYCLOPHOSPHAMIDE
     Indication: ACUTE LYMPHOCYTIC LEUKAEMIA
  5. CLONIDINE. [Concomitant]
     Active Substance: CLONIDINE
     Indication: PRODUCT USED FOR UNKNOWN INDICATION
     Dosage: 0.2 MG, WEEKLY
     Route: 062
     Dates: start: 20160114
  6. ACYCLOVIR. [Concomitant]
     Active Substance: ACYCLOVIR
     Indication: PRODUCT USED FOR UNKNOWN INDICATION
     Dosage: 400 MG, 1X/DAY
     Route: 048
     Dates: start: 20160812
  7. SULFAMETHOXAZOLE AND TRIMETHOPRIM [Concomitant]
     Active Substance: SULFAMETHOXAZOLE\TRIMETHOPRIM
     Dosage: 2 DF, 1X/DAY {SULFAMETHOXAZOLE 800 MG}/{TRIMETHOPRIM 160 MG}
     Route: 048
     Dates: start: 20160114
  8. DASATINIB [Suspect]
     Active Substance: DASATINIB
     Indication: ACUTE LYMPHOCYTIC LEUKAEMIA
  9. BACTRIM [Concomitant]
     Active Substance: SULFAMETHOXAZOLE\TRIMETHOPRIM
     Indication: PRODUCT USED FOR UNKNOWN INDICATION
     Dosage: UNK (ON SATURDAY + SUNDAY, 2 IN 1D) )
  10. GABAPENTIN. [Concomitant]
     Active Substance: GABAPENTIN
     Dosage: 900 MG, 1X/DAY
     Route: 048
     Dates: start: 20160916
  11. VINCRISTINE SULFATE. [Suspect]
     Active Substance: VINCRISTINE SULFATE
     Indication: B PRECURSOR TYPE ACUTE LEUKAEMIA
  12. MAGNESIUM AMINO ACID CHELATE [Concomitant]
     Active Substance: MAGNESIUM
     Indication: PRODUCT USED FOR UNKNOWN INDICATION
     Dosage: 133 MG, 3X/DAY (133 MG,3 IN 1 D)
     Route: 048
     Dates: start: 20150930
  13. METHOTREXATE SODIUM. [Suspect]
     Active Substance: METHOTREXATE SODIUM
     Indication: PHILADELPHIA CHROMOSOME POSITIVE
     Dosage: UNK
  14. CYTARABINE. [Suspect]
     Active Substance: CYTARABINE
     Indication: ACUTE LYMPHOCYTIC LEUKAEMIA
  15. CYCLOPHOSPHAMIDE. [Suspect]
     Active Substance: CYCLOPHOSPHAMIDE
     Indication: B PRECURSOR TYPE ACUTE LEUKAEMIA
  16. DEXAMETHASONE. [Suspect]
     Active Substance: DEXAMETHASONE
     Indication: PHILADELPHIA CHROMOSOME POSITIVE
     Dosage: UNK
  17. FUROSEMIDE. [Concomitant]
     Active Substance: FUROSEMIDE
     Indication: PRODUCT USED FOR UNKNOWN INDICATION
     Dosage: 20 MG, 1X/DAY
     Route: 048
     Dates: start: 20160830
  18. DOXORUBICIN HCL [Suspect]
     Active Substance: DOXORUBICIN HYDROCHLORIDE
     Indication: B PRECURSOR TYPE ACUTE LEUKAEMIA
  19. VICODIN [Concomitant]
     Active Substance: ACETAMINOPHEN\HYDROCODONE BITARTRATE
     Indication: PRODUCT USED FOR UNKNOWN INDICATION
     Dosage: 1 DF, AS NEEDED, (1 IN 6 HR), {PARACETAMOL 300 MG} / {HYDROCODONE BITARTRATE 5 MG}
     Route: 048
     Dates: start: 20160614
  20. CALCIUM 600 + D [Concomitant]
     Active Substance: CALCIUM\VITAMIN D
     Dosage: 2 DF, 1X/DAY
     Route: 048
     Dates: start: 20160217
  21. DOXORUBICIN HCL [Suspect]
     Active Substance: DOXORUBICIN HYDROCHLORIDE
     Indication: PHILADELPHIA CHROMOSOME POSITIVE
     Dosage: UNK
  22. VINCRISTINE SULFATE. [Suspect]
     Active Substance: VINCRISTINE SULFATE
     Indication: ACUTE LYMPHOCYTIC LEUKAEMIA
  23. DASATINIB [Suspect]
     Active Substance: DASATINIB
     Indication: PHILADELPHIA CHROMOSOME POSITIVE
     Dosage: UNK
  24. DEXAMETHASONE. [Suspect]
     Active Substance: DEXAMETHASONE
     Indication: ACUTE LYMPHOCYTIC LEUKAEMIA
  25. POTASSIUM CHLORIDE. [Concomitant]
     Active Substance: POTASSIUM CHLORIDE
     Dosage: 40 MEQ, 2X/DAY, (2 IN 1 D)
     Route: 048
     Dates: start: 20160624
  26. CHOLECALCIFEROL [Concomitant]
     Active Substance: CHOLECALCIFEROL
     Indication: PRODUCT USED FOR UNKNOWN INDICATION
     Dosage: 2000 IU, 1X/DAY
     Route: 048
     Dates: start: 20160114
  27. DOXORUBICIN HCL [Suspect]
     Active Substance: DOXORUBICIN HYDROCHLORIDE
     Indication: ACUTE LYMPHOCYTIC LEUKAEMIA
  28. VINCRISTINE SULFATE. [Suspect]
     Active Substance: VINCRISTINE SULFATE
     Indication: PHILADELPHIA CHROMOSOME POSITIVE
     Dosage: UNK
  29. DASATINIB [Suspect]
     Active Substance: DASATINIB
     Indication: B PRECURSOR TYPE ACUTE LEUKAEMIA
  30. DEXAMETHASONE. [Suspect]
     Active Substance: DEXAMETHASONE
     Indication: B PRECURSOR TYPE ACUTE LEUKAEMIA
  31. HYDROCORTISONE. [Concomitant]
     Active Substance: HYDROCORTISONE
     Dosage: UNK, (2-3 TIMES A DAY)
     Route: 061
     Dates: start: 20160729

REACTIONS (23)
  - Lung infiltration [Recovering/Resolving]
  - Acute kidney injury [Recovering/Resolving]
  - Hypomagnesaemia [Unknown]
  - Arthralgia [Unknown]
  - Hypertension [Unknown]
  - Disease recurrence [Unknown]
  - Neoplasm recurrence [Unknown]
  - Fluid overload [Unknown]
  - Neuropathy peripheral [Unknown]
  - Diarrhoea [Unknown]
  - Nausea [Unknown]
  - Pyrexia [Unknown]
  - Hypertriglyceridaemia [Unknown]
  - Generalised oedema [Unknown]
  - Dyspnoea [Unknown]
  - Interstitial lung disease [Recovering/Resolving]
  - Hyperbilirubinaemia [Unknown]
  - Pancytopenia [Recovering/Resolving]
  - Pericardial effusion [Unknown]
  - Graft versus host disease in skin [Recovered/Resolved]
  - Hypokalaemia [Unknown]
  - Pain [Unknown]
  - Vomiting [Unknown]

NARRATIVE: CASE EVENT DATE: 201603
